FAERS Safety Report 9036012 (Version 1)
Quarter: 2013Q1

REPORT INFORMATION
  Report Type: Report from Study
  Country: US (occurrence: US)
  Receive Date: 20130129
  Receipt Date: 20130129
  Transmission Date: 20140127
  Serious: Yes (Other)
  Sender: FDA-Public Use
  Company Number: US-ABBOTT-12P-163-0902318-00

PATIENT
  Sex: Male

DRUGS (6)
  1. HUMIRA 40 MG/0.8 ML PEN [Suspect]
     Indication: PSORIASIS
     Dates: start: 201001, end: 201110
  2. HUMIRA 40 MG/0.8 ML PEN [Suspect]
     Dates: start: 201201
  3. JANUVIA [Concomitant]
     Indication: DIABETES MELLITUS
  4. AMLODIPINE [Concomitant]
     Indication: HYPERTENSION
  5. VALIUM [Concomitant]
     Indication: ANXIETY
     Dosage: OCCASIONALLY
  6. ASA [Concomitant]
     Indication: PROPHYLAXIS

REACTIONS (1)
  - Pneumonia fungal [Recovered/Resolved]
